FAERS Safety Report 7741828-X (Version None)
Quarter: 2011Q3

REPORT INFORMATION
  Report Type: 
  Country: None (occurrence: None)
  Receive Date: 20110906
  Receipt Date: 20110822
  Transmission Date: 20111222
  Serious: Yes (Hospitalization)
  Sender: FDA-Public Use
  Company Number: DSM-2011-00782

PATIENT
  Age: 90 Year
  Sex: Female

DRUGS (8)
  1. FERROUS FUMARATE [Suspect]
     Indication: PRODUCT USED FOR UNKNOWN INDICATION
     Dosage: 160 MG,ORAL
     Route: 048
     Dates: start: 20110707, end: 20110801
  2. ASPEGIC (ACETYLSALICYLATE LYSINE) (ACETYLSALICYLATE LYSINE) [Concomitant]
  3. CORDARONE [Concomitant]
  4. OLMESARTAN MEDOXOMIL AND HYDROCHLOROTHIZIDE [Suspect]
     Indication: PRODUCT USED FOR UNKNOWN INDICATION
     Dosage: 20/12.5 MG,ORAL
     Route: 048
     Dates: end: 20110801
  5. DEBRIDAT (TRIMEBUTINE) (TRIMEBUTINE) [Concomitant]
  6. PANTOPRAZOLE SODIUM [Suspect]
     Indication: PRODUCT USED FOR UNKNOWN INDICATION
     Dosage: 20 MG,ORAL
     Route: 048
     Dates: start: 20110707, end: 20110801
  7. LOXEN (NICARDIPINE HYDROCHLORIDE) (NICARDIPINE HYDROCHLORIDE) [Concomitant]
  8. PRAXILENE (NAFTIDROFURYL OXALATE) (NAFTIDROFURYL OXALATE) [Concomitant]

REACTIONS (1)
  - LEUKOCYTOCLASTIC VASCULITIS [None]
